FAERS Safety Report 7180746-5 (Version None)
Quarter: 2010Q4

REPORT INFORMATION
  Report Type: 
  Country: None (occurrence: None)
  Receive Date: 20101221
  Receipt Date: 20101210
  Transmission Date: 20110411
  Serious: Yes (Hospitalization)
  Sender: FDA-Public Use
  Company Number: JP-AMGEN-US432610

PATIENT

DRUGS (11)
  1. PANITUMUMAB [Suspect]
     Indication: COLORECTAL CANCER
     Dosage: 6 MG/KG, Q2WK
     Route: 041
     Dates: start: 20100809, end: 20101111
  2. IRINOTECAN HYDROCHLORIDE [Suspect]
     Indication: COLORECTAL CANCER
     Route: 041
     Dates: start: 20100809
  3. FLUOROURACIL [Suspect]
     Indication: COLORECTAL CANCER
     Dosage: 320 MG/M2, Q2WK
     Route: 040
     Dates: start: 20100809
  4. FLUOROURACIL [Suspect]
     Dosage: 1920 MG/M2, Q2WK
     Route: 041
     Dates: start: 20100809
  5. CALCIUM LEVOFOLINATE [Suspect]
     Indication: COLORECTAL CANCER
     Route: 041
     Dates: start: 20100809
  6. ANTIHISTAMINES [Concomitant]
     Indication: PROPHYLAXIS
     Route: 065
  7. CORTICOSTEROIDS [Concomitant]
     Indication: PROPHYLAXIS
     Route: 065
  8. LOCOID [Concomitant]
     Route: 062
  9. MYSER [Concomitant]
     Route: 062
  10. HIRUDOID SOFT [Concomitant]
     Route: 062
  11. OXYCONTIN [Concomitant]
     Route: 048

REACTIONS (5)
  - DERMATITIS ACNEIFORM [None]
  - NAUSEA [None]
  - NEUTROPENIA [None]
  - PYREXIA [None]
  - VOMITING [None]
